FAERS Safety Report 5912562-3 (Version None)
Quarter: 2008Q4

REPORT INFORMATION
  Report Type: 
  Country: None (occurrence: None)
  Receive Date: 20081008
  Receipt Date: 20080929
  Transmission Date: 20090506
  Serious: Yes (Other)
  Sender: FDA-Public Use
  Company Number: GB-ASTRAZENECA-2008GB01833

PATIENT
  Age: 84 Year
  Sex: Female

DRUGS (7)
  1. QUETIAPINE FUMARATE [Suspect]
     Indication: AGITATION
     Route: 048
     Dates: start: 20080829, end: 20080829
  2. QUETIAPINE FUMARATE [Suspect]
     Indication: PARANOIA
     Route: 048
     Dates: start: 20080829, end: 20080829
  3. ATENOLOL [Concomitant]
     Indication: HYPERTENSION
     Route: 048
  4. AMLODIPINE [Concomitant]
     Indication: HYPERTENSION
     Route: 048
  5. ACETAMINOPHEN [Concomitant]
     Route: 048
  6. RANITIDINE [Concomitant]
     Route: 048
  7. VALSARTAN [Concomitant]
     Indication: HYPERTENSION
     Route: 048

REACTIONS (1)
  - SYNCOPE [None]
